FAERS Safety Report 6793473-0 (Version None)
Quarter: 2010Q2

REPORT INFORMATION
  Report Type: 
  Country: None (occurrence: None)
  Receive Date: 20100624
  Receipt Date: 20100416
  Transmission Date: 20101027
  Serious: Yes (Death)
  Sender: FDA-Public Use
  Company Number: US-MYLANLABS-2010S1005731

PATIENT
  Age: 68 Year
  Sex: Female

DRUGS (9)
  1. CLOZAPINE [Suspect]
  2. HALOPERIDOL [Concomitant]
     Indication: AGITATION
     Dosage: Q6HR
     Route: 030
  3. LOPERAMIDE [Concomitant]
     Dosage: NOT TO EXCEED 4 CAPS/24HR
     Route: 048
  4. LORAZEPAM [Concomitant]
     Indication: ANXIETY
     Dosage: 1-2 TABS BY MOUTH EVERY  8 HOURS PRN
     Route: 048
  5. LORAZEPAM [Concomitant]
     Dosage: 0.5-1.0MG IM EVERY 8 HOURS AS NEEDED
     Route: 030
  6. MILK OF MAGNESIA TAB [Concomitant]
     Indication: CONSTIPATION
     Route: 048
  7. NITROSTAT [Concomitant]
     Indication: CHEST PAIN
     Dosage: 1 TAB SL EVERY 5 MINUTES X3 PRN CHEST PAIN
     Route: 060
  8. SEROQUEL [Concomitant]
     Indication: AGITATION
     Dosage: 1 TAB BY MOUTH EVERY 6 HOURS AS NEEDED
     Route: 048
  9. TRAZODONE HCL [Concomitant]
     Dosage: 1/2-1  TAB BY MOUTH AS NEEDED AT BEDTIME
     Route: 048

REACTIONS (1)
  - DEATH [None]
